FAERS Safety Report 5925308-X (Version None)
Quarter: 2008Q3

REPORT INFORMATION
  Report Type: 
  Country: None (occurrence: None)
  Receive Date: 20080909
  Receipt Date: 20070911
  Transmission Date: 20090109
  Serious: Yes (Other)
  Sender: FDA-Public Use
  Company Number: 163-20785-07090497

PATIENT
  Age: 65 Year
  Sex: Male

DRUGS (1)
  1. THALOMID [Suspect]
     Indication: MULTIPLE MYELOMA
     Dosage: 50-200MG, DAILY, ORAL
     Route: 048
     Dates: start: 20050519, end: 20051201

REACTIONS (2)
  - DISEASE PROGRESSION [None]
  - THROMBOSIS [None]
